FAERS Safety Report 20533162 (Version 1)
Quarter: 2022Q1

REPORT INFORMATION
  Report Type: Spontaneous
  Country: US (occurrence: None)
  Receive Date: 20220301
  Receipt Date: 20220301
  Transmission Date: 20220423
  Serious: Yes (Hospitalization)
  Sender: FDA-Public Use
  Company Number: None

PATIENT
  Age: 61 Year
  Sex: Male
  Weight: 88.7 kg

DRUGS (7)
  1. PEMBROLIZUMAB [Suspect]
     Active Substance: PEMBROLIZUMAB
     Dosage: FREQUENCY : ONCE;?
     Route: 042
     Dates: start: 20210308, end: 20210419
  2. ALBUTEROL [Concomitant]
     Active Substance: ALBUTEROL
  3. ATORVASTATIN [Concomitant]
     Active Substance: ATORVASTATIN
  4. INSULIN LISPRO [Concomitant]
     Active Substance: INSULIN LISPRO
  5. PREDNISONE [Concomitant]
     Active Substance: PREDNISONE
  6. RAMELTEON [Concomitant]
     Active Substance: RAMELTEON
  7. WARFARIN [Concomitant]
     Active Substance: WARFARIN

REACTIONS (1)
  - Immune-mediated lung disease [None]

NARRATIVE: CASE EVENT DATE: 20210419
